FAERS Safety Report 9459238 (Version 2)
Quarter: 2013Q3

REPORT INFORMATION
  Report Type: Spontaneous
  Country: US (occurrence: US)
  Receive Date: 20130814
  Receipt Date: 20130924
  Transmission Date: 20140515
  Serious: Yes (Other)
  Sender: FDA-Public Use
  Company Number: US-009507513-1308USA004576

PATIENT
  Age: 84 Year
  Sex: Female

DRUGS (5)
  1. DULERA [Suspect]
     Indication: LUNG DISORDER
     Dosage: 2 PUFFS, QD
     Route: 055
     Dates: start: 20110802, end: 20110811
  2. DULERA [Suspect]
     Indication: CARDIAC DISORDER
     Dosage: 2 PUFFS, QD
     Route: 055
     Dates: start: 20120105, end: 20130615
  3. DULERA [Suspect]
     Indication: LUNG DISORDER
     Dosage: 2 PUFFS DAILY
     Route: 055
     Dates: start: 20130615
  4. DULERA [Suspect]
     Indication: CARDIAC DISORDER
  5. Z-PAK [Concomitant]

REACTIONS (18)
  - Aphonia [Recovered/Resolved]
  - Dysphonia [Recovering/Resolving]
  - Rhinorrhoea [Recovering/Resolving]
  - Urticaria [Recovering/Resolving]
  - Fatigue [Not Recovered/Not Resolved]
  - Dyspnoea [Unknown]
  - Incorrect dose administered [Unknown]
  - Drug dose omission [Unknown]
  - Product quality issue [Unknown]
  - Dyspnoea [Recovering/Resolving]
  - Cough [Unknown]
  - Respiratory tract congestion [Recovering/Resolving]
  - Productive cough [Recovering/Resolving]
  - Rash [Recovering/Resolving]
  - Choking [Recovering/Resolving]
  - Dysphonia [Not Recovered/Not Resolved]
  - Pruritus [Recovering/Resolving]
  - Sputum culture positive [Recovering/Resolving]
